FAERS Safety Report 8778267 (Version 2)
Quarter: 2013Q4

REPORT INFORMATION
  Report Type: Spontaneous
  Country: US (occurrence: US)
  Receive Date: 20120911
  Receipt Date: 20131101
  Transmission Date: 20140711
  Serious: No
  Sender: FDA-Public Use
  Company Number: US-009507513-1207USA003866

PATIENT
  Sex: Female

DRUGS (2)
  1. NEXPLANON [Suspect]
     Dosage: 1 UNK, UNK
  2. NEXPLANON [Suspect]
     Dosage: 1 DF, UNK

REACTIONS (2)
  - Device difficult to use [Unknown]
  - No adverse event [Unknown]
